APPROVED DRUG PRODUCT: PREGABALIN
Active Ingredient: PREGABALIN
Strength: 165MG
Dosage Form/Route: TABLET, EXTENDED RELEASE;ORAL
Application: A215249 | Product #002 | TE Code: AB
Applicant: RUBICON RESEARCH LTD
Approved: Mar 22, 2022 | RLD: No | RS: No | Type: RX